FAERS Safety Report 19463319 (Version 1)
Quarter: 2021Q2

REPORT INFORMATION
  Report Type: Spontaneous
  Country: EC (occurrence: EC)
  Receive Date: 20210625
  Receipt Date: 20210625
  Transmission Date: 20210717
  Serious: Yes (Other)
  Sender: FDA-Public Use
  Company Number: EC-ORGANON-O2106ECU001553

PATIENT
  Age: 82 Year
  Sex: Female

DRUGS (6)
  1. NITAZOXANIDE [Concomitant]
     Active Substance: NITAZOXANIDE
     Dosage: UNK
  2. O2 [OXYGEN] [Concomitant]
     Active Substance: OXYGEN
     Dosage: UNK
  3. CHLOROQUINE. [Concomitant]
     Active Substance: CHLOROQUINE
     Dosage: UNK
  4. AZITHROMYCIN ANHYDROUS. [Concomitant]
     Active Substance: AZITHROMYCIN ANHYDROUS
     Dosage: UNK
  5. SIMVASTATIN. [Suspect]
     Active Substance: SIMVASTATIN
     Dosage: UNK
     Route: 048
  6. FONDAPARINUX [Concomitant]
     Active Substance: FONDAPARINUX
     Dosage: UNK

REACTIONS (1)
  - COVID-19 [Recovered/Resolved]
